FAERS Safety Report 8317161-4 (Version None)
Quarter: 2012Q2

REPORT INFORMATION
  Report Type: 
  Country: None (occurrence: None)
  Receive Date: 20120427
  Receipt Date: 20120424
  Transmission Date: 20120825
  Serious: No
  Sender: FDA-Public Use
  Company Number: PHEH2012US008848

PATIENT
  Sex: Male
  Weight: 89.342 kg

DRUGS (13)
  1. IMITREX [Concomitant]
  2. LUNESTA [Concomitant]
  3. PREDNISONE [Concomitant]
  4. JANUMET [Concomitant]
  5. CLINDAGEL [Concomitant]
  6. TASIGNA [Suspect]
     Dosage: 300 MG, BID
     Route: 048
  7. ATENOLOL [Concomitant]
  8. PLAVIX [Concomitant]
  9. FOLIC ACID [Concomitant]
  10. NITROGLYCERIN [Concomitant]
  11. LEFLUNOMIDE [Concomitant]
  12. KETOCONAZOLE [Concomitant]
  13. NEXIUM [Concomitant]

REACTIONS (5)
  - RASH [None]
  - BLISTER [None]
  - CONTUSION [None]
  - NAUSEA [None]
  - PRURITUS [None]
